FAERS Safety Report 11393282 (Version 1)
Quarter: 2015Q3

REPORT INFORMATION
  Report Type: Spontaneous
  Country: US (occurrence: US)
  Receive Date: 20150818
  Receipt Date: 20150818
  Transmission Date: 20151125
  Serious: No
  Sender: FDA-Public Use
  Company Number: US-PFIZER INC-2015264355

PATIENT
  Sex: Male

DRUGS (1)
  1. ADVIL [Suspect]
     Active Substance: IBUPROFEN
     Indication: WOUND
     Dosage: 200 MG, SINGLE, WITH WATER
     Dates: start: 20150805

REACTIONS (3)
  - Skin irritation [Unknown]
  - Pruritus [Unknown]
  - Product use issue [Unknown]
